FAERS Safety Report 9432231 (Version 1)
Quarter: 2013Q3

REPORT INFORMATION
  Report Type: Report from Study
  Country: AU (occurrence: AU)
  Receive Date: 20130731
  Receipt Date: 20130731
  Transmission Date: 20140515
  Serious: Yes (Other)
  Sender: FDA-Public Use
  Company Number: PHHY2013AU080775

PATIENT
  Age: 58 Year
  Sex: Female

DRUGS (14)
  1. ACLASTA [Suspect]
     Indication: OSTEOPOROSIS
     Dosage: 5 MG
     Route: 042
     Dates: start: 20100331
  2. ACLASTA [Suspect]
     Dosage: 5 MG
     Route: 042
     Dates: start: 20110526
  3. ACLASTA [Suspect]
     Dosage: 5 MG
     Route: 042
     Dates: start: 20120820
  4. ACLASTA [Suspect]
     Dosage: 5 MG, PER 100 ML
     Route: 042
     Dates: start: 20130617
  5. ESTRADOT [Concomitant]
     Dosage: 37.5 UG, PER 24 HOURS
     Dates: start: 20130413
  6. MICARDIS PLUS [Concomitant]
     Dosage: 1 DF, QD
     Dates: start: 20130427
  7. NAPROSYN [Concomitant]
     Indication: OSTEOPOROSIS
     Dosage: 1 - 2 DF, TID
     Dates: start: 20130606
  8. PANADEINE FORTE [Concomitant]
     Indication: OSTEOPOROSIS
     Dosage: 1- 2 DF, TID
     Dates: start: 20130606
  9. SERETIDE MDI [Concomitant]
     Dosage: 2 DF, PUFFS BID, GARGLE AND RINSE AFTER USE
     Dates: start: 20130313
  10. SOMAC [Concomitant]
     Indication: DYSPEPSIA
     Dosage: 1 DF, QD
     Dates: start: 20130205
  11. URSOFALK [Concomitant]
     Dosage: 1 DF, BID
     Dates: start: 20110922
  12. VENTOLIN NEBULAS [Concomitant]
     Dosage: 3 DF, QD
     Dates: start: 20130413
  13. XANAX [Concomitant]
     Indication: ANXIETY DISORDER
     Dosage: 1 DF, PRN
     Dates: start: 20130427
  14. ZOLPIDEM SANDOZ [Concomitant]
     Indication: INSOMNIA
     Dosage: 1 DF, NOCTE
     Dates: start: 20130524

REACTIONS (3)
  - Asthma [Not Recovered/Not Resolved]
  - Acute sinusitis [Not Recovered/Not Resolved]
  - Inappropriate schedule of drug administration [Unknown]
